FAERS Safety Report 18020533 (Version 1)
Quarter: 2020Q3

REPORT INFORMATION
  Report Type: Spontaneous
  Country: US (occurrence: US)
  Receive Date: 20200714
  Receipt Date: 20200714
  Transmission Date: 20201103
  Serious: No
  Sender: FDA-Public Use
  Company Number: US-SA-2020SA100559

PATIENT

DRUGS (1)
  1. TOUJEO [Suspect]
     Active Substance: INSULIN GLARGINE
     Indication: TYPE 3 DIABETES MELLITUS
     Dosage: 12 IU, 14 IU ONCE DAILY
     Dates: start: 20200430

REACTIONS (3)
  - Asthenia [Unknown]
  - Dizziness [Unknown]
  - Product storage error [Unknown]
